FAERS Safety Report 7091185-X (Version None)
Quarter: 2010Q4

REPORT INFORMATION
  Report Type: 
  Country: None (occurrence: None)
  Receive Date: 20101109
  Receipt Date: 20101103
  Transmission Date: 20110411
  Serious: Yes (Hospitalization)
  Sender: FDA-Public Use
  Company Number: FR-JNJCH-2010025336

PATIENT
  Sex: Male

DRUGS (4)
  1. ACTIFED [Suspect]
     Indication: ORAL INFECTION
     Dosage: TEXT:THREE TIMES DAILY
     Route: 048
     Dates: start: 20100920, end: 20100925
  2. OPIUM ALKALOIDS AND DERIVATIVES [Suspect]
     Indication: ORAL INFECTION
     Dosage: TEXT:THREE TIMES DAILY
     Route: 048
     Dates: start: 20100920, end: 20100925
  3. VASTEN [Concomitant]
     Indication: HYPERCHOLESTEROLAEMIA
     Dosage: TEXT:UNKNOWN
     Route: 065
  4. BRIAZIDE [Concomitant]
     Indication: HYPERTENSION
     Dosage: TEXT:UNKNOWN
     Route: 065

REACTIONS (1)
  - PANCREATITIS ACUTE [None]
